FAERS Safety Report 5130762-X (Version None)
Quarter: 2006Q4

REPORT INFORMATION
  Report Type: 
  Country: None (occurrence: None)
  Receive Date: 20061018
  Receipt Date: 20061018
  Transmission Date: 20070319
  Serious: No
  Sender: FDA-Public Use
  Company Number: None

PATIENT
  Age: 57 Year
  Sex: Male
  Weight: 158.9858 kg

DRUGS (5)
  1. PROLASTIN [Suspect]
     Indication: ALPHA-1 ANTI-TRYPSIN DEFICIENCY
     Dosage: 9540MG (+/- 10%)   WEEKLY   IV
     Route: 042
     Dates: start: 20061003
  2. PROLASTIN [Suspect]
     Indication: ALPHA-1 ANTI-TRYPSIN DEFICIENCY
     Dosage: 9540MG (+/- 10%)   WEEKLY   IV
     Route: 042
     Dates: start: 20061010
  3. SPIRONOLACTOLONE [Concomitant]
  4. LASIX [Concomitant]
  5. LEVAQUIN [Concomitant]

REACTIONS (3)
  - DIABETES MELLITUS [None]
  - FATIGUE [None]
  - FLUSHING [None]
